FAERS Safety Report 8103323-8 (Version None)
Quarter: 2012Q1

REPORT INFORMATION
  Report Type: 
  Country: None (occurrence: None)
  Receive Date: 20120201
  Receipt Date: 20120124
  Transmission Date: 20120608
  Serious: Yes (Life-Threatening, Disabling, Other)
  Sender: FDA-Public Use
  Company Number: US-PFIZER INC-HQWYE648317JAN05

PATIENT
  Sex: Female
  Weight: 63 kg

DRUGS (6)
  1. PROVERA [Suspect]
     Dosage: UNK
  2. PROGESTERONE [Suspect]
     Indication: HORMONE REPLACEMENT THERAPY
     Dosage: 100 MG, UNK
     Dates: start: 19940201, end: 19970301
  3. PREMPRO [Suspect]
     Indication: HORMONE REPLACEMENT THERAPY
     Dosage: 0.0625/2.5 MG
     Route: 048
     Dates: start: 19970101, end: 20030201
  4. PREMARIN [Suspect]
     Indication: HORMONE REPLACEMENT THERAPY
     Dosage: 0.0625MG
     Route: 048
     Dates: start: 19940201, end: 19970301
  5. ESTROVEN [Suspect]
     Indication: HORMONE REPLACEMENT THERAPY
     Dosage: 150 MG, UNK
     Dates: start: 19990701, end: 19991101
  6. PREMARIN [Suspect]
     Dosage: 0.3 MG, UNK
     Route: 048
     Dates: start: 19980101, end: 19990301

REACTIONS (3)
  - LYMPHOEDEMA [None]
  - BREAST CANCER FEMALE [None]
  - DEPRESSION [None]
